FAERS Safety Report 6683021-8 (Version None)
Quarter: 2010Q2

REPORT INFORMATION
  Report Type: 
  Country: None (occurrence: None)
  Receive Date: 20100415
  Receipt Date: 20100312
  Transmission Date: 20101027
  Serious: Yes (Death, Other)
  Sender: FDA-Public Use
  Company Number: US-BAXTER-2008BH006195

PATIENT
  Age: 70 Year
  Sex: Female

DRUGS (23)
  1. HEPARIN SODIUM INJECTION [Suspect]
     Indication: VASCULAR GRAFT
     Route: 042
     Dates: start: 20060603, end: 20060603
  2. HEPARIN SODIUM INJECTION [Suspect]
     Indication: CATHETERISATION CARDIAC
     Route: 042
     Dates: start: 20060603, end: 20060603
  3. HEPARIN SODIUM INJECTION [Suspect]
     Indication: MYOCARDIAL INFARCTION
     Route: 042
     Dates: start: 20060603, end: 20060603
  4. HEPARIN SODIUM INJECTION [Suspect]
     Route: 050
     Dates: start: 20060603, end: 20060603
  5. HEPARIN SODIUM INJECTION [Suspect]
     Route: 050
     Dates: start: 20060603, end: 20060603
  6. HEPARIN SODIUM INJECTION [Suspect]
     Route: 050
     Dates: start: 20060603, end: 20060603
  7. HEPARIN SODIUM INJECTION [Suspect]
     Route: 040
     Dates: start: 20060603, end: 20060603
  8. HEPARIN SODIUM INJECTION [Suspect]
     Route: 040
     Dates: start: 20060603, end: 20060603
  9. HEPARIN SODIUM INJECTION [Suspect]
     Route: 040
     Dates: start: 20060603, end: 20060603
  10. HEPARIN SODIUM INJECTION [Suspect]
     Route: 040
     Dates: start: 20060603, end: 20060603
  11. HEPARIN SODIUM INJECTION [Suspect]
     Route: 040
     Dates: start: 20060603, end: 20060603
  12. HEPARIN SODIUM INJECTION [Suspect]
     Route: 040
     Dates: start: 20060603, end: 20060603
  13. HEPARIN SODIUM INJECTION [Suspect]
     Route: 040
     Dates: start: 20060603, end: 20060603
  14. HEPARIN SODIUM INJECTION [Suspect]
     Route: 040
     Dates: start: 20060603, end: 20060603
  15. HEPARIN SODIUM INJECTION [Suspect]
     Route: 040
     Dates: start: 20060603, end: 20060603
  16. HEPARIN SODIUM 5,000 UNITS IN DEXTROSE 5% [Suspect]
     Indication: CATHETERISATION CARDIAC
     Route: 041
     Dates: start: 20060603, end: 20060604
  17. HEPARIN SODIUM 5,000 UNITS IN DEXTROSE 5% [Suspect]
     Indication: CORONARY ARTERY BYPASS
     Route: 041
     Dates: start: 20060603, end: 20060604
  18. INTEGRILIN [Concomitant]
     Indication: DRUG USE FOR UNKNOWN INDICATION
     Route: 065
  19. ASPIRIN [Concomitant]
     Indication: DRUG USE FOR UNKNOWN INDICATION
     Route: 065
  20. LOPRESSOR [Concomitant]
     Indication: DRUG USE FOR UNKNOWN INDICATION
     Route: 065
  21. SIMVASTATIN [Concomitant]
     Indication: DRUG USE FOR UNKNOWN INDICATION
     Route: 065
  22. FOSINOPRIL SODIUM [Concomitant]
     Indication: DRUG USE FOR UNKNOWN INDICATION
     Route: 065
  23. METFORMIN HCL [Concomitant]
     Indication: DRUG USE FOR UNKNOWN INDICATION
     Route: 065

REACTIONS (6)
  - ACUTE MYOCARDIAL INFARCTION [None]
  - CARDIOGENIC SHOCK [None]
  - CYANOSIS [None]
  - DEEP VEIN THROMBOSIS [None]
  - HEPARIN-INDUCED THROMBOCYTOPENIA [None]
  - SOFT TISSUE NECROSIS [None]
